FAERS Safety Report 9192120 (Version 1)
Quarter: 2013Q1

REPORT INFORMATION
  Report Type: Spontaneous
  Country: IT (occurrence: None)
  Receive Date: 20130325
  Receipt Date: 20130325
  Transmission Date: 20140127
  Serious: Yes (Hospitalization)
  Sender: FDA-Public Use
  Company Number: 2013-05159

PATIENT
  Age: 80 Year
  Sex: Female

DRUGS (4)
  1. MIRTAZAPINE (MIRTAZAPINE) [Suspect]
     Indication: PRODUCT USED FOR UNKNOWN INDICATION
     Dosage: UNK, ORAL
     Route: 048
     Dates: start: 20130312, end: 20130312
  2. MIRTAZAPINE (MIRTAZAPINE) [Suspect]
     Dosage: UNK, ORAL
     Route: 048
     Dates: start: 20130312, end: 20130312
  3. XANAX (ALPRAZOLAM) [Suspect]
  4. PROMAZINE (PROMAZINE) [Concomitant]

REACTIONS (1)
  - Sopor [None]
